FAERS Safety Report 25736594 (Version 2)
Quarter: 2025Q4

REPORT INFORMATION
  Report Type: Spontaneous
  Country: US (occurrence: US)
  Receive Date: 20250828
  Receipt Date: 20251006
  Transmission Date: 20260117
  Serious: No
  Sender: ALEXION PHARMACEUTICALS
  Company Number: US-ASTRAZENECA-202508USA020395US

PATIENT
  Age: 79 Year
  Sex: Female

DRUGS (7)
  1. BREZTRI [Suspect]
     Active Substance: BUDESONIDE\FORMOTEROL\GLYCOPYRROLATE
     Indication: Oropharyngeal pain
     Dosage: UNK, BID,
     Route: 065
  2. TREPROSTINIL [Suspect]
     Active Substance: TREPROSTINIL
     Indication: Pulmonary hypertension
     Dosage: 16 ?G, QID, INHALATION
     Route: 065
  3. TREPROSTINIL [Suspect]
     Active Substance: TREPROSTINIL
     Indication: Interstitial lung disease
     Dosage: 16 ?G, QID, INHALATION
     Route: 065
     Dates: start: 20250729, end: 20250731
  4. TREPROSTINIL [Suspect]
     Active Substance: TREPROSTINIL
     Dosage: 16 ?G, QID, INHALATION
     Route: 065
     Dates: start: 20250801, end: 20250809
  5. TREPROSTINIL [Suspect]
     Active Substance: TREPROSTINIL
     Dosage: UNK, INHALATION
     Route: 065
  6. TYVASO DPI [Suspect]
     Active Substance: TREPROSTINIL
     Indication: Pulmonary hypertension
     Dosage: UNK
  7. TYVASO DPI [Suspect]
     Active Substance: TREPROSTINIL
     Indication: Interstitial lung disease

REACTIONS (8)
  - Aphthous ulcer [Unknown]
  - Dyspepsia [Unknown]
  - Diarrhoea [Unknown]
  - Cough [Unknown]
  - Nausea [Unknown]
  - Oropharyngeal pain [Unknown]
  - Glossodynia [Unknown]
  - Vomiting [Unknown]
